FAERS Safety Report 12290978 (Version 1)
Quarter: 2016Q2

REPORT INFORMATION
  Report Type: Spontaneous
  Country: US (occurrence: US)
  Receive Date: 20160421
  Receipt Date: 20160421
  Transmission Date: 20160815
  Serious: No
  Sender: FDA-Public Use
  Company Number: US-BAYER-2016-068422

PATIENT
  Age: 25 Year
  Sex: Female

DRUGS (1)
  1. MIRENA [Suspect]
     Active Substance: LEVONORGESTREL
     Indication: CONTRACEPTION
     Dosage: 20 MCG/24HR, CONT
     Route: 015
     Dates: start: 201302

REACTIONS (5)
  - Back pain [None]
  - Muscle spasms [None]
  - Abdominal pain [None]
  - Weight increased [None]
  - Weight loss poor [None]

NARRATIVE: CASE EVENT DATE: 201303
